FAERS Safety Report 14125895 (Version 1)
Quarter: 2017Q4

REPORT INFORMATION
  Report Type: Spontaneous
  Country: US (occurrence: US)
  Receive Date: 20171025
  Receipt Date: 20171025
  Transmission Date: 20180321
  Serious: No
  Sender: FDA-Public Use
  Company Number: US-ST. RENATUS-2017STR00046

PATIENT
  Age: 24 Year
  Sex: Male
  Weight: 90.7 kg

DRUGS (1)
  1. KOVANAZE [Suspect]
     Active Substance: OXYMETAZOLINE HYDROCHLORIDE\TETRACAINE HYDROCHLORIDE
     Indication: ARTIFICIAL CROWN PROCEDURE
     Dosage: 4 DOSAGE UNITS, UNK
     Route: 045
     Dates: start: 20160716, end: 20160716

REACTIONS (2)
  - Overdose [Recovered/Resolved]
  - Drug ineffective [Recovered/Resolved]

NARRATIVE: CASE EVENT DATE: 20160716
